FAERS Safety Report 7484860-6 (Version None)
Quarter: 2011Q2

REPORT INFORMATION
  Report Type: 
  Country: None (occurrence: None)
  Receive Date: 20110517
  Receipt Date: 20110506
  Transmission Date: 20111010
  Serious: Yes (Hospitalization)
  Sender: FDA-Public Use
  Company Number: A0785706A

PATIENT
  Age: 60 Year
  Sex: Male
  Weight: 114.1 kg

DRUGS (6)
  1. AVANDIA [Suspect]
     Indication: DIABETES MELLITUS
     Dosage: 4MG PER DAY
     Route: 048
     Dates: start: 20010201, end: 20070801
  2. ZESTRIL [Concomitant]
  3. AMARYL [Concomitant]
  4. LIPITOR [Concomitant]
  5. DESIPRAMIDE HCL [Concomitant]
  6. GLUCOPHAGE [Concomitant]

REACTIONS (5)
  - ATRIAL FIBRILLATION [None]
  - CORONARY ARTERY DISEASE [None]
  - CARDIAC FAILURE CONGESTIVE [None]
  - MYOCARDIAL ISCHAEMIA [None]
  - MYOCARDIAL INFARCTION [None]
